FAERS Safety Report 5068435-4 (Version None)
Quarter: 2006Q3

REPORT INFORMATION
  Report Type: 
  Country: None (occurrence: None)
  Receive Date: 20060802
  Receipt Date: 20050927
  Transmission Date: 20061208
  Serious: Yes (Hospitalization)
  Sender: FDA-Public Use
  Company Number: US-BRISTOL-MYERS SQUIBB COMPANY-13123005

PATIENT
  Age: 60 Year
  Sex: Male
  Weight: 113 kg

DRUGS (6)
  1. COUMADIN [Suspect]
     Indication: THROMBOSIS
  2. REMICADE [Suspect]
     Indication: RHEUMATOID ARTHRITIS
     Dosage: RX STARTED IN SEP OR OCT-2004; 25-AUG-2005: DOSE INCREASED TO 500MG + LAST INFUSION ADMINISTERED.
     Route: 042
     Dates: start: 20040101
  3. PREDNISONE [Concomitant]
  4. METHOTREXATE [Concomitant]
  5. GLUCOPHAGE [Concomitant]
     Indication: DIABETES MELLITUS
  6. MAVIK [Concomitant]
     Indication: HYPERTENSION

REACTIONS (1)
  - HAEMORRHAGE [None]
